FAERS Safety Report 5803335-0 (Version None)
Quarter: 2008Q2

REPORT INFORMATION
  Report Type: 
  Country: None (occurrence: None)
  Receive Date: 20080627
  Receipt Date: 20080123
  Transmission Date: 20081010
  Serious: Yes (Hospitalization)
  Sender: FDA-Public Use
  Company Number: 513143

PATIENT
  Age: 51 Year
  Sex: Male
  Weight: 79.4 kg

DRUGS (4)
  1. INTERFERON ALFA (INTERFERON ALFA) [Suspect]
     Indication: HEPATITIS C VIRUS
     Dates: start: 20030101, end: 20030101
  2. RIBAVIRIN [Suspect]
     Indication: HEPATITIS C
     Dates: start: 20030101, end: 20030101
  3. PEGASYS [Suspect]
     Indication: HEPATITIS C
     Dosage: 180 MCG 1 PER WEEK SUBCUTANEOUS
     Route: 058
     Dates: start: 20070501, end: 20070528
  4. REBETOL [Suspect]
     Indication: HEPATITIS
     Dosage: 1200 MG DAILY ORAL
     Route: 048
     Dates: start: 20070301, end: 20070528

REACTIONS (2)
  - GASTRITIS [None]
  - PANCREATITIS [None]
